FAERS Safety Report 5148459-9 (Version None)
Quarter: 2006Q4

REPORT INFORMATION
  Report Type: 
  Country: None (occurrence: None)
  Receive Date: 20061110
  Receipt Date: 20060907
  Transmission Date: 20070319
  Serious: Yes (Hospitalization)
  Sender: FDA-Public Use
  Company Number: BE-MERCK-0609BEL00011

PATIENT
  Age: 74 Year
  Sex: Female

DRUGS (11)
  1. ZETIA [Suspect]
     Indication: HYPERCHOLESTEROLAEMIA
     Route: 048
  2. PHENPROCOUMON [Concomitant]
     Indication: PROPHYLAXIS
     Route: 065
  3. REPAGLINIDE [Concomitant]
     Indication: DIABETES MELLITUS
     Route: 048
  4. DIGOXIN [Concomitant]
     Route: 048
  5. SOTALOL HYDROCHLORIDE [Concomitant]
     Indication: MYOCARDIAL INFARCTION
     Route: 048
  6. FLECAINIDE ACETATE [Concomitant]
     Indication: ATRIAL FIBRILLATION
     Route: 048
  7. PERINDOPRIL ERBUMINE [Concomitant]
     Route: 048
  8. ATORVASTATIN CALCIUM [Concomitant]
     Indication: HYPERCHOLESTEROLAEMIA
     Route: 048
  9. ALPRAZOLAM [Concomitant]
     Route: 048
  10. NITRAZEPAM [Concomitant]
     Route: 048
  11. FENOFIBRATE [Concomitant]
     Indication: HYPERCHOLESTEROLAEMIA
     Route: 048

REACTIONS (1)
  - BLOOD VISCOSITY INCREASED [None]
